FAERS Safety Report 5197931-4 (Version None)
Quarter: 2006Q4

REPORT INFORMATION
  Report Type: 
  Country: None (occurrence: None)
  Receive Date: 20061228
  Receipt Date: 20061220
  Transmission Date: 20070319
  Serious: Yes (Hospitalization)
  Sender: FDA-Public Use
  Company Number: 163-21880-06120343

PATIENT
  Age: 81 Year
  Sex: Male
  Weight: 68.0396 kg

DRUGS (1)
  1. REVLIMID [Suspect]
     Indication: MYELODYSPLASTIC SYNDROME
     Dosage: 5 MG, 1 IN 1 D, ORAL
     Route: 048
     Dates: start: 20060929, end: 20061116

REACTIONS (10)
  - ABSCESS [None]
  - ERYTHEMA [None]
  - FISTULA [None]
  - IMMUNE SYSTEM DISORDER [None]
  - LOCALISED INFECTION [None]
  - PAIN [None]
  - PANCYTOPENIA [None]
  - PARONYCHIA [None]
  - PNEUMONIA [None]
  - TENDERNESS [None]
